FAERS Safety Report 9203909 (Version 2)
Quarter: 2016Q2

REPORT INFORMATION
  Report Type: Spontaneous
  Country: HU (occurrence: HU)
  Receive Date: 20130402
  Receipt Date: 20160629
  Transmission Date: 20160815
  Serious: Yes (Hospitalization)
  Sender: FDA-Public Use
  Company Number: HU-SANOFI-AVENTIS-2013SA034291

PATIENT
  Age: 56 Year
  Sex: Female

DRUGS (3)
  1. METHOTREXATE [Suspect]
     Active Substance: METHOTREXATE
     Indication: MIXED CONNECTIVE TISSUE DISEASE
     Route: 065
     Dates: start: 200908
  2. METHYLPREDNISOLONE. [Concomitant]
     Active Substance: METHYLPREDNISOLONE
     Indication: MIXED CONNECTIVE TISSUE DISEASE
     Dates: start: 200908
  3. CHLOROQUINE. [Suspect]
     Active Substance: CHLOROQUINE
     Indication: MIXED CONNECTIVE TISSUE DISEASE
     Dosage: SUPRAMAXIMAL DOSE
     Route: 065
     Dates: start: 200908

REACTIONS (18)
  - Brain natriuretic peptide increased [Recovering/Resolving]
  - Atrioventricular block complete [Recovered/Resolved]
  - Blood lactate dehydrogenase increased [Unknown]
  - Torsade de pointes [Unknown]
  - Hypotension [Unknown]
  - Overdose [Unknown]
  - Echocardiogram abnormal [Recovering/Resolving]
  - Biopsy muscle abnormal [Unknown]
  - Cardiomyopathy [Recovering/Resolving]
  - Myopathy [Unknown]
  - Electrocardiogram QT prolonged [Unknown]
  - Cardiac arrest [Unknown]
  - Muscular weakness [Unknown]
  - Ventricular fibrillation [Unknown]
  - Asthenia [Unknown]
  - Bradycardia [Recovered/Resolved]
  - Dizziness [Unknown]
  - Product use issue [Unknown]
